FAERS Safety Report 8488934-2 (Version None)
Quarter: 2012Q3

REPORT INFORMATION
  Report Type: 
  Country: None (occurrence: None)
  Receive Date: 20120705
  Receipt Date: 20120702
  Transmission Date: 20120928
  Serious: No
  Sender: FDA-Public Use
  Company Number: US-TEVA-346353USA

PATIENT
  Age: 40 Year
  Sex: Female

DRUGS (1)
  1. COPAXONE [Suspect]
     Indication: MULTIPLE SCLEROSIS

REACTIONS (5)
  - DYSSTASIA [None]
  - URTICARIA [None]
  - PAIN [None]
  - DYSPNOEA [None]
  - PRURITUS GENERALISED [None]
